FAERS Safety Report 8199610-8 (Version None)
Quarter: 2012Q1

REPORT INFORMATION
  Report Type: 
  Country: None (occurrence: None)
  Receive Date: 20120310
  Receipt Date: 20120228
  Transmission Date: 20120608
  Serious: No
  Sender: FDA-Public Use
  Company Number: US-B.I. PHARMACEUTICALS,INC./RIDGEFIELD-2012-BP-03798BP

PATIENT
  Sex: Male

DRUGS (29)
  1. JANUVIA [Concomitant]
     Indication: DIABETES MELLITUS
     Dosage: 50 MG
  2. ATIVAN [Concomitant]
     Dosage: 200 MG
     Route: 048
  3. MULTI-VITAMINS [Concomitant]
     Dosage: 200 MG
     Route: 048
  4. SPIRIVA [Suspect]
     Indication: CHRONIC OBSTRUCTIVE PULMONARY DISEASE
     Dosage: 18 MCG
     Route: 055
     Dates: start: 20070101
  5. DULCOLAX [Concomitant]
     Indication: CONSTIPATION
     Route: 048
  6. LIPITOR [Concomitant]
     Indication: BLOOD CHOLESTEROL INCREASED
     Dosage: 80 MG
     Route: 048
  7. AMILORIDE HYDROCHLORIDE [Concomitant]
     Indication: HYPERTENSION
     Dosage: 10 MG
     Route: 048
  8. COLACE [Concomitant]
     Dosage: 200 MG
     Route: 048
  9. DDAVP [Concomitant]
     Indication: DIABETES MELLITUS
     Dosage: 12 PUF
     Route: 045
  10. ATIVAN [Concomitant]
     Indication: ANXIETY
     Dosage: 2 MG
     Route: 048
  11. KEFLEX [Concomitant]
     Dosage: 200 MG
     Route: 048
  12. MIRALAX [Concomitant]
     Dosage: 200 MG
     Route: 048
  13. CLOZARIL [Concomitant]
     Indication: SCHIZOPHRENIA
     Dosage: 600 MG
     Route: 048
  14. IRON SULFATETHIAMIN COMPOUND TAB [Concomitant]
     Dosage: 200 MG
     Route: 048
  15. MULTI-VITAMINS [Concomitant]
     Indication: SUPPLEMENTATION THERAPY
     Route: 048
  16. CALCIUM [Concomitant]
     Dosage: 200 MG
     Route: 048
  17. OMEPRAZOLE [Concomitant]
     Indication: GASTROOESOPHAGEAL REFLUX DISEASE
     Dosage: 20 MG
     Route: 048
  18. VITAMIN D [Concomitant]
     Indication: VITAMIN D DEFICIENCY
     Dosage: 2000 MG
     Route: 048
  19. IRON SULFATETHIAMIN COMPOUND TAB [Concomitant]
     Indication: ANAEMIA
     Dosage: 650 MG
     Route: 048
  20. METOPROLOL SUCCINATE [Concomitant]
     Indication: HYPERTENSION
     Dosage: 50 MG
     Route: 048
  21. LAMICTAL [Concomitant]
     Indication: SCHIZOPHRENIA
     Dosage: 50 MG
     Route: 048
  22. CLOZARIL [Concomitant]
     Dosage: 200 MG
     Route: 048
  23. METOPROLOL SUCCINATE [Concomitant]
     Dosage: 200 MG
     Route: 048
  24. PLAVIX [Concomitant]
     Indication: ANTICOAGULANT THERAPY
     Dosage: 75 MG
     Route: 048
  25. KEFLEX [Concomitant]
     Indication: PROPHYLAXIS URINARY TRACT INFECTION
     Dosage: 500 MG
     Route: 048
  26. MIRALAX [Concomitant]
     Indication: CONSTIPATION
     Dosage: 17 G
     Route: 048
  27. ADVAIR DISKUS 100/50 [Concomitant]
     Indication: CHRONIC OBSTRUCTIVE PULMONARY DISEASE
     Dosage: 2 PUF
     Route: 055
  28. COLACE [Concomitant]
     Indication: CONSTIPATION
     Dosage: 200 MG
     Route: 048
  29. CALCIUM [Concomitant]
     Indication: SUPPLEMENTATION THERAPY
     Route: 048

REACTIONS (1)
  - CONTUSION [None]
